FAERS Safety Report 9963584 (Version 2)
Quarter: 2014Q1

REPORT INFORMATION
  Report Type: Report from Study
  Country: IT (occurrence: IT)
  Receive Date: 20140305
  Receipt Date: 20140305
  Transmission Date: 20141002
  Serious: Yes (Death, Hospitalization)
  Sender: FDA-Public Use
  Company Number: PHHO2011IT14741

PATIENT
  Sex: 0

DRUGS (5)
  1. EVEROLIMUS [Suspect]
     Indication: HEPATOCELLULAR CARCINOMA
     Dosage: 7.5 MG, QD
     Route: 048
     Dates: start: 20110707, end: 20110815
  2. EVEROLIMUS [Suspect]
     Dosage: CODE NOT BROKEN
  3. NITRODERM [Concomitant]
     Dosage: 5 MG, UNK
     Dates: start: 20110822
  4. INDERAL [Concomitant]
     Indication: ARRHYTHMIA
     Dosage: 3*20 MG, UNK
     Dates: start: 20111013
  5. ALDACTONE [Concomitant]
     Indication: HYPERTENSION
     Dosage: 25 MG, QOD
     Dates: start: 20111117

REACTIONS (3)
  - Sudden death [Fatal]
  - Interstitial lung disease [Recovered/Resolved with Sequelae]
  - Cardiac enzymes increased [Recovered/Resolved]
